FAERS Safety Report 4997161-2 (Version None)
Quarter: 2006Q2

REPORT INFORMATION
  Report Type: 
  Country: None (occurrence: None)
  Receive Date: 20060508
  Receipt Date: 20060508
  Transmission Date: 20061013
  Serious: Yes (Life-Threatening, Hospitalization, Other)
  Sender: FDA-Public Use
  Company Number: None

PATIENT
  Sex: Female
  Weight: 86.1834 kg

DRUGS (1)
  1. TRIAZ 6% PAD MEDICIS [Suspect]
     Indication: ACNE
     Dosage: ONCE A DAY DAILY TOP
     Route: 061
     Dates: start: 20060409, end: 20060414

REACTIONS (2)
  - BURNING SENSATION [None]
  - SUPRAVENTRICULAR TACHYCARDIA [None]
